FAERS Safety Report 4557970-0 (Version None)
Quarter: 2005Q1

REPORT INFORMATION
  Report Type: 
  Country: None (occurrence: None)
  Receive Date: 20050121
  Receipt Date: 20040324
  Transmission Date: 20050727
  Serious: No
  Sender: FDA-Public Use
  Company Number: US-BRISTOL-MYERS SQUIBB COMPANY-12543047

PATIENT
  Age: 58 Year
  Sex: Male
  Weight: 116 kg

DRUGS (5)
  1. SERZONE [Suspect]
     Indication: SLEEP DISORDER
     Dosage: FROM 100 MG TO 400 MG ONCE DAILY
     Route: 048
     Dates: start: 19990420, end: 20010117
  2. PROCARDIA XL [Concomitant]
  3. METHYLPHENIDATE TABS 5MG [Concomitant]
  4. DIOVAN [Concomitant]
  5. DOXEPIN HCL [Concomitant]

REACTIONS (3)
  - ALANINE AMINOTRANSFERASE INCREASED [None]
  - ANXIETY [None]
  - DRY MOUTH [None]
